FAERS Safety Report 8133024-1 (Version None)
Quarter: 2012Q1

REPORT INFORMATION
  Report Type: 
  Country: None (occurrence: None)
  Receive Date: 20120213
  Receipt Date: 20120206
  Transmission Date: 20120608
  Serious: Yes (Other)
  Sender: FDA-Public Use
  Company Number: PHHY2012CA008773

PATIENT
  Sex: Male

DRUGS (3)
  1. RASILEZ [Suspect]
     Route: 048
     Dates: end: 20111215
  2. DIAMICRON MR [Concomitant]
     Indication: DIABETES MELLITUS
     Dosage: 60 MG
  3. RASILEZ [Suspect]
     Indication: HYPERTENSION
     Dosage: 150 MG, QD
     Route: 048
     Dates: start: 20111201

REACTIONS (1)
  - CHEST PAIN [None]
